FAERS Safety Report 16416100 (Version 1)
Quarter: 2019Q2

REPORT INFORMATION
  Report Type: Spontaneous
  Country: US (occurrence: US)
  Receive Date: 20190611
  Receipt Date: 20190611
  Transmission Date: 20190711
  Serious: No
  Sender: FDA-Public Use
  Company Number: US-JUBILANT CADISTA PHARMACEUTICALS-2018JUB00511

PATIENT
  Sex: Female

DRUGS (2)
  1. FUROSEMIDE (MYLAN) [Concomitant]
     Active Substance: FUROSEMIDE
  2. SPIRONOLACTONE. [Suspect]
     Active Substance: SPIRONOLACTONE
     Dosage: UNK
     Dates: end: 2018

REACTIONS (1)
  - Micturition urgency [Unknown]
